FAERS Safety Report 9692689 (Version 2)
Quarter: 2013Q4

REPORT INFORMATION
  Report Type: Spontaneous
  Country: HU (occurrence: HU)
  Receive Date: 20131118
  Receipt Date: 20131126
  Transmission Date: 20140711
  Serious: Yes (Other)
  Sender: FDA-Public Use
  Company Number: PHHY2013HU130521

PATIENT
  Age: 64 Year
  Sex: Female
  Weight: 62 kg

DRUGS (7)
  1. TASIGNA [Suspect]
     Indication: CHRONIC MYELOID LEUKAEMIA
     Dosage: 800 MG, QD
     Route: 048
     Dates: start: 20131014, end: 20131025
  2. NEBIBETA [Concomitant]
     Dosage: 2.5 MG, UNK
  3. ASPIRIN [Concomitant]
     Dosage: 100 MG, UNK
  4. VITAMIN D3 [Concomitant]
  5. ZOCOR [Concomitant]
     Dosage: 10 MG, UNK
  6. CORVATON [Concomitant]
     Dosage: 2 MG, UNK
  7. ANTIHYPERTENSIVES [Concomitant]

REACTIONS (3)
  - Angina pectoris [Recovered/Resolved]
  - Pruritus [Recovered/Resolved]
  - Urticaria [Recovered/Resolved]
